FAERS Safety Report 4932481-9 (Version None)
Quarter: 2006Q1

REPORT INFORMATION
  Report Type: 
  Country: None (occurrence: None)
  Receive Date: 20060227
  Receipt Date: 20060210
  Transmission Date: 20060701
  Serious: Yes (Hospitalization)
  Sender: FDA-Public Use
  Company Number: REM_00187_2006

PATIENT
  Age: 54 Year
  Sex: Female

DRUGS (11)
  1. TREPROSTINOL [Suspect]
     Indication: PULMONARY HYPERTENSION
     Dosage: 20 NG/KG/MIN:SC
     Route: 058
     Dates: start: 20051003
  2. GABAPENTIN [Concomitant]
  3. WARFARIN SODIUM [Concomitant]
  4. L-THYROXINE [Concomitant]
  5. RABEPRAZOLE SODIUM [Concomitant]
  6. ATORVASTATIN CALCIUM [Concomitant]
  7. TRAMADOL HCL [Concomitant]
  8. FRUSEMIDE [Concomitant]
  9. NIFEDIPINE [Concomitant]
  10. BOSENTAN [Concomitant]
  11. DOSULEPIN HYDROCHLORIDE [Concomitant]

REACTIONS (3)
  - INFUSION RELATED REACTION [None]
  - INFUSION SITE ABSCESS [None]
  - INJECTION SITE CELLULITIS [None]
